FAERS Safety Report 4430395-4 (Version None)
Quarter: 2004Q3

REPORT INFORMATION
  Report Type: 
  Country: None (occurrence: None)
  Receive Date: 20040820
  Receipt Date: 20040803
  Transmission Date: 20050211
  Serious: Yes (Hospitalization)
  Sender: FDA-Public Use
  Company Number: US-MERCK-0408USA00253

PATIENT
  Age: 59 Year
  Sex: Male

DRUGS (23)
  1. VENTOLIN [Concomitant]
     Route: 065
  2. FOSAMAX [Suspect]
     Indication: OSTEOPOROSIS
     Route: 048
     Dates: start: 20040802, end: 20040802
  3. CALCIUM (UNSPECIFIED) [Concomitant]
     Route: 065
  4. OS-CAL [Concomitant]
     Indication: MINERAL SUPPLEMENTATION
     Route: 048
  5. FLEXERIL [Concomitant]
     Route: 065
  6. NEORAL [Concomitant]
     Indication: HEART AND LUNG TRANSPLANT
     Route: 048
     Dates: start: 19890101
  7. DIGOXIN [Concomitant]
     Indication: SUPRAVENTRICULAR TACHYCARDIA
     Route: 048
  8. DIGOXIN [Concomitant]
     Indication: HEART AND LUNG TRANSPLANT
     Route: 048
  9. ZETIA [Concomitant]
     Indication: LIPIDS INCREASED
     Route: 048
  10. PROSCAR [Concomitant]
     Indication: BENIGN PROSTATIC HYPERPLASIA
     Route: 048
  11. FLOVENT [Concomitant]
     Route: 055
  12. CELLCEPT [Concomitant]
     Indication: PROPHYLAXIS AGAINST TRANSPLANT REJECTION
     Route: 048
  13. PROTONIX [Concomitant]
     Route: 065
  14. PRAVACHOL [Concomitant]
     Indication: LIPIDS INCREASED
     Route: 048
  15. PREDNISONE [Concomitant]
     Route: 048
  16. MIACALCIN [Concomitant]
     Indication: OSTEOPENIA
     Route: 055
  17. SEREVENT [Concomitant]
     Route: 055
  18. BACTRIM DS [Concomitant]
     Indication: INFECTION PROPHYLAXIS
     Route: 065
  19. VERAPAMIL HYDROCHLORIDE [Concomitant]
     Indication: PULMONARY HYPERTENSION
     Route: 065
  20. COUMADIN [Concomitant]
     Indication: DEEP VEIN THROMBOSIS
     Route: 048
     Dates: start: 19980101
  21. COUMADIN [Concomitant]
     Route: 048
     Dates: start: 19980101
  22. COUMADIN [Concomitant]
     Indication: PULMONARY EMBOLISM
     Route: 048
     Dates: start: 19980101
  23. COUMADIN [Concomitant]
     Route: 048
     Dates: start: 19980101

REACTIONS (3)
  - ABDOMINAL PAIN [None]
  - NAUSEA [None]
  - PYREXIA [None]
